FAERS Safety Report 5466561-9 (Version None)
Quarter: 2007Q3

REPORT INFORMATION
  Report Type: 
  Country: None (occurrence: None)
  Receive Date: 20070924
  Receipt Date: 20070924
  Transmission Date: 20080115
  Serious: Yes (Other)
  Sender: FDA-Public Use
  Company Number: None

PATIENT
  Sex: Male

DRUGS (1)
  1. FLEBOGAMMA [Suspect]
     Indication: SELECTIVE IGA IMMUNODEFICIENCY

REACTIONS (6)
  - BLOOD PRESSURE DIASTOLIC DECREASED [None]
  - CHILLS [None]
  - FEELING COLD [None]
  - INFUSION RELATED REACTION [None]
  - TENSION [None]
  - TREMOR [None]
